FAERS Safety Report 16372763 (Version 1)
Quarter: 2019Q2

REPORT INFORMATION
  Report Type: Spontaneous
  Country: US (occurrence: US)
  Receive Date: 20190530
  Receipt Date: 20190530
  Transmission Date: 20190711
  Serious: No
  Sender: FDA-Public Use
  Company Number: US-AMGEN-USASP2019085467

PATIENT
  Sex: Male

DRUGS (1)
  1. ENBREL [Suspect]
     Active Substance: ETANERCEPT
     Indication: PRODUCT USED FOR UNKNOWN INDICATION
     Dosage: UNK
     Route: 065

REACTIONS (6)
  - Joint stiffness [Unknown]
  - Musculoskeletal pain [Unknown]
  - Musculoskeletal stiffness [Unknown]
  - Drug ineffective [Unknown]
  - Arthralgia [Unknown]
  - Pain in extremity [Unknown]
